FAERS Safety Report 4602438-6 (Version None)
Quarter: 2005Q1

REPORT INFORMATION
  Report Type: 
  Country: None (occurrence: None)
  Receive Date: 20050307
  Receipt Date: 20050225
  Transmission Date: 20050727
  Serious: No
  Sender: FDA-Public Use
  Company Number: 2005UW03159

PATIENT
  Age: 57 Year
  Sex: Female

DRUGS (1)
  1. DIPRIVAN [Suspect]
     Indication: SEDATION
     Dates: start: 20020101

REACTIONS (5)
  - AMPUTATION [None]
  - CHRONIC OBSTRUCTIVE AIRWAYS DISEASE EXACERBATED [None]
  - INFUSION RELATED REACTION [None]
  - NECROTISING FASCIITIS [None]
  - SKIN NECROSIS [None]
